FAERS Safety Report 10327303 (Version 2)
Quarter: 2015Q1

REPORT INFORMATION
  Report Type: Spontaneous
  Country: GB (occurrence: GB)
  Receive Date: 20140721
  Receipt Date: 20150327
  Transmission Date: 20150720
  Serious: Yes (Other)
  Sender: FDA-Public Use
  Company Number: GB-ACCORD-024833

PATIENT
  Age: 60 Year
  Sex: Female

DRUGS (2)
  1. TRAMADOL/TRAMADOL HYDROCHLORIDE [Suspect]
     Active Substance: TRAMADOL HYDROCHLORIDE
     Indication: ARTHRALGIA
     Dosage: PT. ALSO RECEIVED TRAMADOL FOR OSTEOARTHRITIS AND ANXIETY.
     Route: 048
     Dates: start: 2013, end: 20140309
  2. CITALOPRAM [Interacting]
     Active Substance: CITALOPRAM HYDROBROMIDE
     Indication: ANXIETY
     Dosage: RECEIVED ORAL CITALOPRAM 90 MG FROM UNKNOWN DATE OF 2012 TO 09-MAR-2014 IN SEPARATE DOSES.

REACTIONS (13)
  - Drug interaction [Recovered/Resolved]
  - Skin discolouration [Recovered/Resolved]
  - Product packaging confusion [None]
  - Muscle rigidity [Recovered/Resolved]
  - Medication error [Unknown]
  - Fall [Recovered/Resolved]
  - Accidental overdose [Unknown]
  - Speech disorder [Recovered/Resolved]
  - Unresponsive to stimuli [Recovered/Resolved]
  - Off label use [Unknown]
  - Bruxism [Recovered/Resolved]
  - Confusional state [Recovered/Resolved]
  - Disorientation [Recovered/Resolved]

NARRATIVE: CASE EVENT DATE: 20140309
